FAERS Safety Report 6473987-3 (Version None)
Quarter: 2009Q4

REPORT INFORMATION
  Report Type: 
  Country: None (occurrence: None)
  Receive Date: 20091204
  Receipt Date: 20091125
  Transmission Date: 20100525
  Serious: Yes (Other)
  Sender: FDA-Public Use
  Company Number: JP-ASTRAZENECA-2009SE28063

PATIENT
  Age: 34 Year
  Sex: Female

DRUGS (2)
  1. MEROPEN [Suspect]
     Indication: MENINGITIS BACTERIAL
     Route: 042
  2. VANCOMYCIN HCL [Suspect]
     Route: 065

REACTIONS (2)
  - AGRANULOCYTOSIS [None]
  - DEAFNESS [None]
